FAERS Safety Report 8842361 (Version 1)
Quarter: 2012Q4

REPORT INFORMATION
  Report Type: 
  Country: US (occurrence: US)
  Receive Date: 20121016
  Receipt Date: 20121016
  Transmission Date: 20130627
  Serious: Yes (Death)
  Sender: FDA-Public Use
  Company Number: US-ROCHE-1116010

PATIENT
  Sex: Female

DRUGS (1)
  1. NUTROPIN DEPOT [Suspect]
     Indication: DWARFISM
     Route: 065
     Dates: start: 20010530

REACTIONS (1)
  - Death [Fatal]
